FAERS Safety Report 7231883-8 (Version None)
Quarter: 2011Q1

REPORT INFORMATION
  Report Type: 
  Country: None (occurrence: None)
  Receive Date: 20110118
  Receipt Date: 20110113
  Transmission Date: 20110831
  Serious: Yes (Other)
  Sender: FDA-Public Use
  Company Number: US-PFIZER INC-2011009493

PATIENT
  Sex: Female
  Weight: 76.19 kg

DRUGS (5)
  1. ZOLOFT [Suspect]
     Indication: ANXIETY
     Dosage: 50 MG, 1X/DAY
     Route: 048
     Dates: start: 20030101
  2. FEMARA [Concomitant]
     Indication: NEOPLASM MALIGNANT
     Dosage: UNK
  3. VITAMIN D [Concomitant]
     Dosage: UNK
  4. ZOLOFT [Suspect]
     Indication: IRRITABLE BOWEL SYNDROME
  5. ZOLOFT [Suspect]
     Indication: DEPRESSION

REACTIONS (1)
  - BREAST CANCER [None]
